FAERS Safety Report 13362774 (Version 1)
Quarter: 2017Q1

REPORT INFORMATION
  Report Type: Spontaneous
  Country: FR (occurrence: FR)
  Receive Date: 20170323
  Receipt Date: 20170323
  Transmission Date: 20170429
  Serious: Yes (Other)
  Sender: FDA-Public Use
  Company Number: FR-009507513-1703FRA009322

PATIENT
  Age: 30 Year
  Sex: Female
  Weight: 65 kg

DRUGS (1)
  1. ETONOGESTREL IMPLANT- UNKNOWN [Suspect]
     Active Substance: ETONOGESTREL
     Indication: PRODUCT USED FOR UNKNOWN INDICATION
     Dosage: THREE YEARS, IN THE LEFT ARM
     Route: 059
     Dates: start: 20141217

REACTIONS (5)
  - Unintended pregnancy [Unknown]
  - Menstruation normal [Unknown]
  - Breast swelling [Unknown]
  - Menstruation delayed [Unknown]
  - Pregnancy on contraceptive [Unknown]

NARRATIVE: CASE EVENT DATE: 201702
